FAERS Safety Report 4778799-4 (Version None)
Quarter: 2005Q3

REPORT INFORMATION
  Report Type: 
  Country: None (occurrence: None)
  Receive Date: 20050923
  Receipt Date: 20050912
  Transmission Date: 20060218
  Serious: Yes (Death, Hospitalization)
  Sender: FDA-Public Use
  Company Number: 128-20785-05090047

PATIENT
  Age: 58 Year
  Sex: Female

DRUGS (3)
  1. THALIDOMIDE - PHARMION (THALIDOMIDE) (50 MILLIGRAM, CAPSULES) [Suspect]
     Indication: MULTIPLE MYELOMA
     Dosage: 100 MG, DAILY , ORAL
     Route: 048
     Dates: start: 20050818, end: 20050822
  2. CYCLOPHOSPHAMIDE [Suspect]
     Dosage: 50 MG, DAILY
     Dates: start: 20050818, end: 20050822
  3. DEXAMETHASONE [Suspect]
     Dosage: 20 MG, TWICE A DAY, ORAL
     Route: 048
     Dates: start: 20050818, end: 20050822

REACTIONS (3)
  - BLOOD CREATININE INCREASED [None]
  - MENINGITIS [None]
  - PNEUMONITIS [None]
